FAERS Safety Report 15342773 (Version 1)
Quarter: 2018Q3

REPORT INFORMATION
  Report Type: Report from Study
  Country: US (occurrence: US)
  Receive Date: 20180903
  Receipt Date: 20180903
  Transmission Date: 20181010
  Serious: Yes (Hospitalization)
  Sender: FDA-Public Use
  Company Number: US-TEVA-2018-US-950161

PATIENT
  Age: 81 Year
  Sex: Female

DRUGS (1)
  1. COPAXONE [Suspect]
     Active Substance: GLATIRAMER ACETATE
     Indication: MULTIPLE SCLEROSIS
     Route: 058
     Dates: start: 20180316, end: 20180629

REACTIONS (4)
  - Syncope [Recovering/Resolving]
  - Fatigue [Recovering/Resolving]
  - Respiratory arrest [Recovering/Resolving]
  - Retrograde amnesia [Recovering/Resolving]

NARRATIVE: CASE EVENT DATE: 201806
